FAERS Safety Report 18232380 (Version 1)
Quarter: 2020Q3

REPORT INFORMATION
  Report Type: Spontaneous
  Country: CA (occurrence: CA)
  Receive Date: 20200904
  Receipt Date: 20200904
  Transmission Date: 20201103
  Serious: Yes (Life-Threatening, Hospitalization)
  Sender: FDA-Public Use
  Company Number: CA-TEVA-2020-CA-1822358

PATIENT
  Age: 73 Year
  Sex: Male
  Weight: 99.88 kg

DRUGS (10)
  1. AMLODIPINE [Concomitant]
     Active Substance: AMLODIPINE BESYLATE
  2. APO PREDNISONE TAB 50MG [Suspect]
     Active Substance: PREDNISONE
     Route: 048
  3. VITAMIN D [Concomitant]
     Active Substance: VITAMIN D NOS
  4. DOCETAXEL INJECTION USP [Suspect]
     Active Substance: DOCETAXEL
     Indication: PROSTATE CANCER METASTATIC
     Route: 042
  5. ALLOPURINOL. [Concomitant]
     Active Substance: ALLOPURINOL
  6. TRAJENTA [Concomitant]
     Active Substance: LINAGLIPTIN
  7. ATORVASTATIN [Concomitant]
     Active Substance: ATORVASTATIN
  8. GLICLAZIDE MR [Concomitant]
     Active Substance: GLICLAZIDE
  9. TAMSULOSIN CR [Concomitant]
     Active Substance: TAMSULOSIN
  10. LORAZEPAM. [Concomitant]
     Active Substance: LORAZEPAM

REACTIONS (1)
  - Urosepsis [Recovered/Resolved]
